APPROVED DRUG PRODUCT: URSODIOL
Active Ingredient: URSODIOL
Strength: 250MG
Dosage Form/Route: TABLET;ORAL
Application: A202540 | Product #001 | TE Code: AB
Applicant: PH HEALTH LTD
Approved: Feb 14, 2013 | RLD: No | RS: No | Type: RX